FAERS Safety Report 6681308-6 (Version None)
Quarter: 2010Q2

REPORT INFORMATION
  Report Type: 
  Country: None (occurrence: None)
  Receive Date: 20100414
  Receipt Date: 20100406
  Transmission Date: 20101027
  Serious: Yes (Hospitalization, Other)
  Sender: FDA-Public Use
  Company Number: BR-ABBOTT-09P-020-0612167-00

PATIENT
  Sex: Female

DRUGS (5)
  1. HUMIRA [Suspect]
     Indication: RHEUMATOID ARTHRITIS
     Route: 058
  2. ARAVA [Concomitant]
     Indication: RHEUMATOID ARTHRITIS
     Route: 048
  3. PREDNISOLONE [Concomitant]
     Indication: RHEUMATOID ARTHRITIS
     Route: 048
  4. SODIUM ALENDRONATE [Concomitant]
     Indication: OSTEOPENIA
     Route: 048
  5. CALCIUM [Concomitant]
     Indication: OSTEOPENIA

REACTIONS (3)
  - BALANCE DISORDER [None]
  - LUMBAR VERTEBRAL FRACTURE [None]
  - WEIGHT DECREASED [None]
